FAERS Safety Report 14622207 (Version 1)
Quarter: 2018Q1

REPORT INFORMATION
  Report Type: Spontaneous
  Country: US (occurrence: US)
  Receive Date: 20180311
  Receipt Date: 20180311
  Transmission Date: 20180509
  Serious: No
  Sender: FDA-Public Use
  Company Number: US-BIOGEN-2018BI00534417

PATIENT
  Sex: Male

DRUGS (1)
  1. TYSABRI [Suspect]
     Active Substance: NATALIZUMAB
     Indication: MULTIPLE SCLEROSIS
     Route: 065
     Dates: start: 20171207

REACTIONS (7)
  - Musculoskeletal pain [Unknown]
  - Neck pain [Unknown]
  - Radial nerve palsy [Unknown]
  - Fatigue [Unknown]
  - Mood altered [Unknown]
  - Musculoskeletal stiffness [Unknown]
  - Back pain [Unknown]
